FAERS Safety Report 8268823-9 (Version None)
Quarter: 2012Q2

REPORT INFORMATION
  Report Type: 
  Country: None (occurrence: None)
  Receive Date: 20120409
  Receipt Date: 20120402
  Transmission Date: 20120825
  Serious: Yes (Hospitalization, Other)
  Sender: FDA-Public Use
  Company Number: BR-ASTRAZENECA-2009SE32023

PATIENT
  Age: 75 Year
  Sex: Female
  Weight: 63 kg

DRUGS (2)
  1. OMEPRAZOLE [Suspect]
     Indication: GASTRITIS EROSIVE
     Route: 048
     Dates: start: 19980101, end: 20120301
  2. NEXIUM [Suspect]
     Indication: GASTRITIS EROSIVE
     Route: 048
     Dates: start: 20091201, end: 20091214

REACTIONS (13)
  - BACK PAIN [None]
  - BLOOD PRESSURE INCREASED [None]
  - WHITE BLOOD CELL COUNT INCREASED [None]
  - ASTHENIA [None]
  - BURNING SENSATION [None]
  - DIVERTICULITIS [None]
  - ADRENAL NEOPLASM [None]
  - GASTRIC POLYPS [None]
  - NAUSEA [None]
  - WEIGHT DECREASED [None]
  - PAIN IN EXTREMITY [None]
  - PYREXIA [None]
  - HEADACHE [None]
